FAERS Safety Report 9581966 (Version 1)
Quarter: 2013Q4

REPORT INFORMATION
  Report Type: Report from Study
  Country: FR (occurrence: FR)
  Receive Date: 20131002
  Receipt Date: 20131002
  Transmission Date: 20140711
  Serious: Yes (Death, Other)
  Sender: FDA-Public Use
  Company Number: FR-OTSUKA-US-2013-11795

PATIENT
  Age: 60 Year
  Sex: Female

DRUGS (5)
  1. BUSULFEX [Suspect]
     Indication: CENTRAL NERVOUS SYSTEM LYMPHOMA
     Dosage: 136 MG MILLIGRAM(S), QD
     Route: 042
     Dates: start: 20130112, end: 20130114
  2. THIOTEPA [Suspect]
     Indication: CENTRAL NERVOUS SYSTEM LYMPHOMA
     Dosage: 465 MG MILLIGRAM(S), QD
     Route: 042
     Dates: start: 20130109, end: 20130111
  3. ENDOXAN [Suspect]
     Indication: CENTRAL NERVOUS SYSTEM LYMPHOMA
     Dosage: 5100 MG MILLIGRAM(S), UNK
     Route: 042
     Dates: start: 20130115, end: 20130116
  4. RIVOTRIL [Suspect]
     Indication: CENTRAL NERVOUS SYSTEM LYMPHOMA
     Dosage: UNK
     Route: 042
  5. UROMITEXAN [Suspect]
     Indication: CENTRAL NERVOUS SYSTEM LYMPHOMA
     Dosage: 3060 MG MILLIGRAM(S), QD
     Route: 042
     Dates: start: 20130115, end: 20130116

REACTIONS (3)
  - Cardiac arrest [Fatal]
  - Neutropenia [Unknown]
  - Mucosal inflammation [Unknown]
